FAERS Safety Report 22069224 (Version 1)
Quarter: 2023Q1

REPORT INFORMATION
  Report Type: Spontaneous
  Country: US (occurrence: US)
  Receive Date: 20230307
  Receipt Date: 20230307
  Transmission Date: 20230417
  Serious: No
  Sender: FDA-Public Use
  Company Number: US-AMNEAL PHARMACEUTICALS-2022-AMRX-03786

PATIENT
  Sex: Male

DRUGS (2)
  1. RYTARY [Suspect]
     Active Substance: CARBIDOPA\LEVODOPA
     Indication: Parkinson^s disease
     Dosage: 1 CAPSULE BY MOUTH AT 5AM, TAKE 2 CAPSULES BY MOUTH AT 8AM, 12PM, 4PM, AND 8PM
     Route: 048
  2. RYTARY [Suspect]
     Active Substance: CARBIDOPA\LEVODOPA
     Dosage: 1 CAPSULE BY MOUTH AT 6AM, 2 CAPSULES AT 8AM, 4PM, AND 8PM, 3 CAPS AT 12 PM
     Route: 048

REACTIONS (3)
  - Chills [Unknown]
  - On and off phenomenon [Unknown]
  - Hyperhidrosis [Unknown]
